FAERS Safety Report 4719563-1 (Version None)
Quarter: 2005Q3

REPORT INFORMATION
  Report Type: 
  Country: None (occurrence: None)
  Receive Date: 20050719
  Receipt Date: 20050708
  Transmission Date: 20060218
  Serious: Yes (Hospitalization)
  Sender: FDA-Public Use
  Company Number: 6015937

PATIENT
  Age: 76 Year
  Sex: Female

DRUGS (12)
  1. CARDENSIEL                   (BISOPROLOL) [Suspect]
     Dosage: 3,75 MG (3,75 MG, 1 D) ORAL
     Route: 048
  2. CORDARONE [Suspect]
     Indication: VENTRICULAR TACHYCARDIA
     Dosage: 8 DOSAGE FORMS (8 DOSAGE FORMS, 1 D) ORAL
     Route: 048
     Dates: start: 20050607, end: 20050610
  3. PREVISCAN                          (FLUINDIONE) [Suspect]
     Dosage: 20  MG (20 MG, 1 IN 1 D) ORAL
     Route: 048
  4. LASILIX (40 MG, TABLET) (FUROSEMIDE) [Suspect]
     Dosage: 40 MG (40 MG, 1 D) ORAL
     Route: 048
  5. RAMIPRIL [Suspect]
     Dosage: 1.25 MG (1,25 MG, 1 IN 1 D) ORAL
     Route: 048
  6. KARDEGIC (160 MG, POWDER FOR ORAL SOLUTION) (ACETYLSALICYLATE LYSINE) [Suspect]
     Dosage: 160 MG (160 MG, 1 IN 1 D) ORAL
     Route: 048
  7. PRAVASTATIN [Concomitant]
  8. ALLOPURINOL [Concomitant]
  9. OMEPRAZOLE [Concomitant]
  10. BRICANYL [Concomitant]
  11. BRONCHODUAL                   (FENOTEROL HYDROBROMIDE, IPRATROPIUM BRO [Concomitant]
  12. ATROVENT [Concomitant]

REACTIONS (2)
  - ELECTROCARDIOGRAM QT PROLONGED [None]
  - TORSADE DE POINTES [None]
